FAERS Safety Report 6711506-4 (Version None)
Quarter: 2010Q2

REPORT INFORMATION
  Report Type: 
  Country: None (occurrence: None)
  Receive Date: 20100505
  Receipt Date: 20100421
  Transmission Date: 20101027
  Serious: Yes (Hospitalization)
  Sender: FDA-Public Use
  Company Number: PHHY2010FR25442

PATIENT
  Age: 67 Year
  Sex: Male

DRUGS (3)
  1. ZOMETA [Suspect]
     Indication: PROSTATE CANCER
     Dosage: 4 MG
     Dates: start: 20100223
  2. ZOLADEX [Concomitant]
     Indication: PROSTATE CANCER
  3. CASODEX [Concomitant]
     Indication: PROSTATE CANCER

REACTIONS (7)
  - BLOOD PHOSPHORUS DECREASED [None]
  - DEHYDRATION [None]
  - OLIGURIA [None]
  - PYREXIA [None]
  - RENAL FAILURE ACUTE [None]
  - URINARY TRACT INFECTION ENTEROCOCCAL [None]
  - UROSEPSIS [None]
